FAERS Safety Report 24696121 (Version 1)
Quarter: 2024Q4

REPORT INFORMATION
  Report Type: Spontaneous
  Country: TH (occurrence: TH)
  Receive Date: 20241204
  Receipt Date: 20241204
  Transmission Date: 20250115
  Serious: Yes (Hospitalization)
  Sender: ACCORD
  Company Number: TH-MLMSERVICE-20241118-PI259997-00218-1

PATIENT
  Age: 36 Year
  Sex: Female

DRUGS (28)
  1. METHOTREXATE [Suspect]
     Active Substance: METHOTREXATE
     Indication: Polyarteritis nodosa
  2. TOFACITINIB [Suspect]
     Active Substance: TOFACITINIB
     Indication: COVID-19 pneumonia
     Dates: start: 2023, end: 20231102
  3. BARICITINIB [Suspect]
     Active Substance: BARICITINIB
     Indication: COVID-19
     Dates: start: 2023, end: 2023
  4. PREDNISOLONE [Suspect]
     Active Substance: PREDNISOLONE
     Indication: COVID-19 pneumonia
     Dates: start: 2023, end: 20231102
  5. TOCILIZUMAB [Suspect]
     Active Substance: TOCILIZUMAB
     Indication: Polyarteritis nodosa
     Dates: end: 20231102
  6. RITUXIMAB [Suspect]
     Active Substance: RITUXIMAB
     Indication: Polyarteritis nodosa
     Dosage: SHE HAD BEEN ON RITUXIMAB FOR THE PAST SIX YEARS
  7. AZATHIOPRINE [Suspect]
     Active Substance: AZATHIOPRINE
     Indication: Polyarteritis nodosa
  8. METHYLPREDNISOLONE [Suspect]
     Active Substance: METHYLPREDNISOLONE
     Indication: COVID-19
     Dosage: TAPERING TO DEXAMETHASONE OVER 30 DAYS
     Route: 042
     Dates: start: 202305
  9. DEXAMETHASONE [Suspect]
     Active Substance: DEXAMETHASONE
     Indication: COVID-19 pneumonia
     Dates: start: 2023, end: 2023
  10. REMDESIVIR [Concomitant]
     Active Substance: REMDESIVIR
     Indication: COVID-19 pneumonia
     Dates: start: 202305, end: 2023
  11. OXYGEN [Concomitant]
     Active Substance: OXYGEN
     Indication: Organising pneumonia
     Dosage: CANNULA
     Dates: start: 2023
  12. DEXAMETHASONE [Suspect]
     Active Substance: DEXAMETHASONE
     Indication: Organising pneumonia
     Dates: start: 2023, end: 2023
  13. TOFACITINIB [Suspect]
     Active Substance: TOFACITINIB
     Indication: Organising pneumonia
     Dates: start: 2023, end: 20231102
  14. PREDNISOLONE [Suspect]
     Active Substance: PREDNISOLONE
     Indication: Organising pneumonia
     Dates: start: 2023, end: 20231102
  15. TOCILIZUMAB [Suspect]
     Active Substance: TOCILIZUMAB
     Indication: Cryoglobulinaemia
     Dates: end: 20231102
  16. REMDESIVIR [Concomitant]
     Active Substance: REMDESIVIR
     Indication: Organising pneumonia
     Dates: start: 202305, end: 2023
  17. OXYGEN [Concomitant]
     Active Substance: OXYGEN
     Indication: COVID-19 pneumonia
     Dosage: CANNULA
     Dates: start: 2023
  18. RITUXIMAB [Suspect]
     Active Substance: RITUXIMAB
     Indication: Cryoglobulinaemia
     Dosage: TWO DOSES OF RITUXIMAB
     Dates: start: 202308, end: 20231022
  19. RITUXIMAB [Suspect]
     Active Substance: RITUXIMAB
     Indication: Cryoglobulinaemia
     Dosage: TWO ADDITIONAL DOSES
     Dates: start: 202311
  20. DEXAMETHASONE [Suspect]
     Active Substance: DEXAMETHASONE
     Indication: Organising pneumonia
     Dates: start: 2023, end: 2023
  21. DEXAMETHASONE [Suspect]
     Active Substance: DEXAMETHASONE
     Indication: Organising pneumonia
     Dates: start: 202307, end: 2023
  22. RITUXIMAB [Suspect]
     Active Substance: RITUXIMAB
     Indication: Polyarteritis nodosa
     Dosage: TWO DOSES OF RITUXIMAB
     Dates: start: 202308, end: 20231022
  23. RITUXIMAB [Suspect]
     Active Substance: RITUXIMAB
     Indication: Polyarteritis nodosa
     Dosage: TWO ADDITIONAL DOSES
     Dates: start: 202311
  24. RITUXIMAB [Suspect]
     Active Substance: RITUXIMAB
     Indication: Cryoglobulinaemia
     Dosage: SHE HAD BEEN ON RITUXIMAB FOR THE PAST SIX YEARS
  25. METHOTREXATE [Suspect]
     Active Substance: METHOTREXATE
     Indication: Cryoglobulinaemia
  26. AZATHIOPRINE [Suspect]
     Active Substance: AZATHIOPRINE
     Indication: Cryoglobulinaemia
  27. DEXAMETHASONE [Suspect]
     Active Substance: DEXAMETHASONE
     Indication: COVID-19 pneumonia
     Dates: start: 2023, end: 2023
  28. DEXAMETHASONE [Suspect]
     Active Substance: DEXAMETHASONE
     Indication: COVID-19 pneumonia
     Dates: start: 202307, end: 2023

REACTIONS (5)
  - COVID-19 [Recovering/Resolving]
  - Organising pneumonia [Recovering/Resolving]
  - COVID-19 pneumonia [Recovering/Resolving]
  - Upper respiratory tract infection [Recovered/Resolved]
  - Off label use [Unknown]

NARRATIVE: CASE EVENT DATE: 20230101
